FAERS Safety Report 23742687 (Version 1)
Quarter: 2024Q2

REPORT INFORMATION
  Report Type: Spontaneous
  Country: US (occurrence: US)
  Receive Date: 20240415
  Receipt Date: 20240415
  Transmission Date: 20240716
  Serious: No
  Sender: FDA-Public Use
  Company Number: US-GLK-002317

PATIENT
  Age: 30 Year
  Sex: Male

DRUGS (3)
  1. PHOTREXA [Suspect]
     Active Substance: RIBOFLAVIN 5^-PHOSPHATE SODIUM
     Indication: Keratoconus
     Route: 047
  2. PHOTREXA VISCOUS [Suspect]
     Active Substance: RIBOFLAVIN 5^-PHOSPHATE SODIUM
     Indication: Keratoconus
     Route: 047
  3. Bandage Contact Lens (BCL) [Concomitant]

REACTIONS (4)
  - Corneal abrasion [Unknown]
  - Visual impairment [Not Recovered/Not Resolved]
  - Eye pain [Recovered/Resolved]
  - Corneal epithelium defect [Unknown]
